FAERS Safety Report 8794299 (Version 2)
Quarter: 2012Q4

REPORT INFORMATION
  Report Type: 
  Country: TR (occurrence: TR)
  Receive Date: 20120918
  Receipt Date: 20121225
  Transmission Date: 20130627
  Serious: Yes (Other)
  Sender: FDA-Public Use
  Company Number: TR-AMGEN-TURSP2012057927

PATIENT
  Age: 37 Year
  Sex: Male

DRUGS (3)
  1. ENBREL [Suspect]
     Indication: ANKYLOSING SPONDYLITIS
     Dosage: 25 mg, 2x/week
     Route: 058
     Dates: start: 200806, end: 201106
  2. ENBREL [Suspect]
     Dosage: 50 mg, weekly
     Route: 058
     Dates: start: 20110620
  3. CORTISONE [Concomitant]
     Indication: ANKYLOSING SPONDYLITIS
     Dosage: 25 mg, weekly
     Dates: start: 2010

REACTIONS (2)
  - Nephrolithiasis [Recovered/Resolved]
  - Osteoporosis [Not Recovered/Not Resolved]
